FAERS Safety Report 11335345 (Version 1)
Quarter: 2015Q3

REPORT INFORMATION
  Report Type: Spontaneous
  Country: US (occurrence: None)
  Receive Date: 20150731
  Receipt Date: 20150731
  Transmission Date: 20151125
  Serious: No
  Sender: FDA-Public Use
  Company Number: None

PATIENT
  Age: 69 Year
  Sex: Male

DRUGS (12)
  1. INSULIN [Concomitant]
     Active Substance: INSULIN NOS
  2. MORPHINE [Concomitant]
     Active Substance: MORPHINE
  3. PIPERACILLIN/TAZOBACTAM [Concomitant]
     Active Substance: PIPERACILLIN SODIUM\TAZOBACTAM SODIUM
  4. VANCOMYCIN [Suspect]
     Active Substance: VANCOMYCIN
     Indication: SEPTIC SHOCK
     Route: 042
     Dates: start: 20141120
  5. SENNA [Concomitant]
     Active Substance: SENNA LEAF\SENNOSIDES\SENNOSIDES A AND B
  6. LANSOPRAZOLE. [Concomitant]
     Active Substance: LANSOPRAZOLE
  7. DOCUSATE [Concomitant]
     Active Substance: DOCUSATE
  8. GABAPENTIN. [Concomitant]
     Active Substance: GABAPENTIN
  9. CAPTOPRIL. [Concomitant]
     Active Substance: CAPTOPRIL
  10. CLONIDINE. [Concomitant]
     Active Substance: CLONIDINE
  11. HEPARIN [Concomitant]
     Active Substance: HEPARIN SODIUM
  12. LEVOTHYROXINE. [Concomitant]
     Active Substance: LEVOTHYROXINE

REACTIONS (1)
  - Dyspnoea [None]

NARRATIVE: CASE EVENT DATE: 20141120
